FAERS Safety Report 16423545 (Version 1)
Quarter: 2019Q2

REPORT INFORMATION
  Report Type: Spontaneous
  Country: CA (occurrence: CA)
  Receive Date: 20190613
  Receipt Date: 20190613
  Transmission Date: 20190711
  Serious: Yes (Other)
  Sender: FDA-Public Use
  Company Number: CA-ABBVIE-19K-028-2817327-00

PATIENT
  Age: 59 Year
  Sex: Female

DRUGS (11)
  1. BENADRYL [Concomitant]
     Active Substance: DIPHENHYDRAMINE HYDROCHLORIDE
     Indication: HYPERSENSITIVITY
     Route: 048
  2. SYNTHROID [Concomitant]
     Active Substance: LEVOTHYROXINE SODIUM
     Indication: PRODUCT USED FOR UNKNOWN INDICATION
     Route: 048
  3. TYLENOL ARTHRITIS PAIN [Concomitant]
     Active Substance: ACETAMINOPHEN
     Indication: PRODUCT USED FOR UNKNOWN INDICATION
     Route: 048
  4. AERIUS [Concomitant]
     Indication: HYPERSENSITIVITY
     Route: 048
  5. LANSOPRAZOLE. [Concomitant]
     Active Substance: LANSOPRAZOLE
     Indication: GASTROINTESTINAL DISORDER
     Route: 048
  6. CITALOPRAM [Concomitant]
     Active Substance: CITALOPRAM HYDROBROMIDE
     Indication: PRODUCT USED FOR UNKNOWN INDICATION
     Route: 048
  7. NEORAL [Suspect]
     Active Substance: CYCLOSPORINE
     Indication: PSORIATIC ARTHROPATHY
     Route: 048
  8. METHOTREXATE. [Suspect]
     Active Substance: METHOTREXATE
     Indication: PRODUCT USED FOR UNKNOWN INDICATION
     Route: 058
  9. NEORAL [Suspect]
     Active Substance: CYCLOSPORINE
     Indication: PSORIASIS
  10. HUMIRA [Suspect]
     Active Substance: ADALIMUMAB
     Indication: PRODUCT USED FOR UNKNOWN INDICATION
     Route: 058
  11. CELEBREX [Concomitant]
     Active Substance: CELECOXIB
     Indication: PRODUCT USED FOR UNKNOWN INDICATION
     Route: 065

REACTIONS (19)
  - Fatigue [Unknown]
  - Discomfort [Unknown]
  - Cyanosis [Unknown]
  - Joint stiffness [Unknown]
  - Immunosuppression [Unknown]
  - Arthralgia [Unknown]
  - Erythema [Unknown]
  - Cardiovascular disorder [Unknown]
  - Musculoskeletal stiffness [Unknown]
  - Skin swelling [Unknown]
  - Peripheral swelling [Unknown]
  - Neck pain [Unknown]
  - Diarrhoea [Unknown]
  - Bronchitis chronic [Unknown]
  - Pain in extremity [Unknown]
  - Overweight [Unknown]
  - Musculoskeletal pain [Unknown]
  - Joint swelling [Unknown]
  - Back pain [Unknown]
